FAERS Safety Report 16231932 (Version 1)
Quarter: 2019Q2

REPORT INFORMATION
  Report Type: Spontaneous
  Country: GB (occurrence: GB)
  Receive Date: 20190424
  Receipt Date: 20190424
  Transmission Date: 20190711
  Serious: Yes (Life-Threatening, Hospitalization)
  Sender: FDA-Public Use
  Company Number: GB-TEVA-2019-GB-1040629

PATIENT
  Age: 27 Year
  Sex: Female

DRUGS (1)
  1. PROPRANOLOL HYDROCHLORIDE. [Suspect]
     Active Substance: PROPRANOLOL HYDROCHLORIDE
     Indication: INTENTIONAL OVERDOSE
     Dosage: MORE THAN 1.5 G
     Route: 065

REACTIONS (9)
  - Memory impairment [Recovering/Resolving]
  - Brain hypoxia [Recovering/Resolving]
  - Circulatory collapse [Recovering/Resolving]
  - Cardiac arrest [Recovering/Resolving]
  - Irritability [Recovering/Resolving]
  - Intentional overdose [Recovering/Resolving]
  - Cerebral disorder [Recovering/Resolving]
  - Cognitive disorder [Recovering/Resolving]
  - Hypotension [Recovering/Resolving]
